FAERS Safety Report 12555933 (Version 1)
Quarter: 2016Q3

REPORT INFORMATION
  Report Type: Spontaneous
  Country: US (occurrence: None)
  Receive Date: 20160713
  Receipt Date: 20160713
  Transmission Date: 20161109
  Serious: Yes (Other)
  Sender: FDA-Public Use
  Company Number: None

PATIENT
  Age: 92 Year
  Sex: Female

DRUGS (11)
  1. LOSARTAN. [Concomitant]
     Active Substance: LOSARTAN
  2. LUTEIN [Concomitant]
     Active Substance: LUTEIN
  3. AMLODIPINE [Concomitant]
     Active Substance: AMLODIPINE BESYLATE
  4. COMBIGAN [Concomitant]
     Active Substance: BRIMONIDINE TARTRATE\TIMOLOL MALEATE
  5. HYDROCHLOROTHIAZIDE. [Concomitant]
     Active Substance: HYDROCHLOROTHIAZIDE
  6. CALCIUM [Concomitant]
     Active Substance: CALCIUM
  7. ROSUVASTATIN. [Concomitant]
     Active Substance: ROSUVASTATIN
  8. FLONASE [Concomitant]
     Active Substance: FLUTICASONE PROPIONATE
  9. AVASTIN [Suspect]
     Active Substance: BEVACIZUMAB
     Indication: MACULAR OEDEMA
     Dosage: 1.25 MG/0.05 ML SINGLE INJECTION ONCE INTRAVITREAL INJECTION
     Dates: start: 20160414, end: 20160414
  10. ASPIRIN. [Concomitant]
     Active Substance: ASPIRIN
  11. FOLIC ACID. [Concomitant]
     Active Substance: FOLIC ACID

REACTIONS (2)
  - Vision blurred [None]
  - Visual impairment [None]

NARRATIVE: CASE EVENT DATE: 20160414
